FAERS Safety Report 9821081 (Version 1)
Quarter: 2013Q4

REPORT INFORMATION
  Report Type: Spontaneous
  Country: US (occurrence: None)
  Receive Date: 20131025
  Receipt Date: 20131025
  Transmission Date: 20140711
  Serious: Yes (Other)
  Sender: FDA-Public Use
  Company Number: AP356-00026-SPO-US

PATIENT
  Age: 76 Year
  Sex: Female
  Weight: 61.4 kg

DRUGS (1)
  1. BELVIQ (LORCASERIN HYDROCHLORIDE) [Suspect]
     Indication: WEIGHT CONTROL
     Dosage: 20 MG, 2 IN 1 D, ORAL
     Route: 048
     Dates: start: 20130712, end: 20130717

REACTIONS (7)
  - Balance disorder [None]
  - Feeling cold [None]
  - Confusional state [None]
  - Disturbance in attention [None]
  - Vision blurred [None]
  - Headache [None]
  - Somnolence [None]
